FAERS Safety Report 11385889 (Version 2)
Quarter: 2015Q3

REPORT INFORMATION
  Report Type: Spontaneous
  Country: FR (occurrence: FR)
  Receive Date: 20150817
  Receipt Date: 20150820
  Transmission Date: 20151125
  Serious: Yes (Hospitalization)
  Sender: FDA-Public Use
  Company Number: FR-009507513-1507FRA008758

PATIENT
  Age: 5 Year
  Sex: Male
  Weight: 20 kg

DRUGS (5)
  1. AMIKLIN [Concomitant]
     Active Substance: AMIKACIN SULFATE
     Indication: FEBRILE BONE MARROW APLASIA
     Dosage: 300 MG, QD
     Route: 042
     Dates: start: 20150702, end: 20150704
  2. NOXAFIL [Suspect]
     Active Substance: POSACONAZOLE
     Indication: PROPHYLACTIC CHEMOTHERAPY
     Dosage: 300 MG, QD
     Route: 048
     Dates: start: 20150504, end: 20150711
  3. GLIVEC [Concomitant]
     Active Substance: IMATINIB MESYLATE
     Indication: ANTIBIOTIC THERAPY
     Dosage: 230 MG, QD
     Route: 048
     Dates: start: 20141114
  4. ZOVIRAX [Concomitant]
     Active Substance: ACYCLOVIR
  5. FORTUM [Concomitant]
     Active Substance: CEFTAZIDIME
     Indication: FEBRILE BONE MARROW APLASIA
     Dosage: 1.3 G, TID
     Route: 042
     Dates: start: 20150702, end: 20150707

REACTIONS (6)
  - Off label use [Unknown]
  - Body temperature increased [Unknown]
  - Proteinuria [Recovered/Resolved]
  - Drug intolerance [Unknown]
  - Face oedema [Recovering/Resolving]
  - Hypoproteinaemia [Recovered/Resolved]

NARRATIVE: CASE EVENT DATE: 20150504
